FAERS Safety Report 23469855 (Version 1)
Quarter: 2024Q1

REPORT INFORMATION
  Report Type: Spontaneous
  Country: IT (occurrence: IT)
  Receive Date: 20240202
  Receipt Date: 20240202
  Transmission Date: 20240410
  Serious: Yes (Death, Other)
  Sender: FDA-Public Use
  Company Number: IT-Accord-404220

PATIENT
  Age: 71 Year
  Sex: Female

DRUGS (2)
  1. CAPECITABINE [Suspect]
     Active Substance: CAPECITABINE
     Indication: Thyroid cancer
     Dosage: ON DAY 1 TO 14
  2. TEMOZOLOMIDE [Suspect]
     Active Substance: TEMOZOLOMIDE
     Indication: Thyroid cancer
     Dosage: ON DAY 10 TO 14

REACTIONS (3)
  - Pneumonia [Unknown]
  - Pulmonary sepsis [Fatal]
  - Off label use [Unknown]
